FAERS Safety Report 7250451-5 (Version None)
Quarter: 2011Q1

REPORT INFORMATION
  Report Type: 
  Country: None (occurrence: None)
  Receive Date: 20110118
  Receipt Date: 20110112
  Transmission Date: 20110831
  Serious: Yes (Hospitalization)
  Sender: FDA-Public Use
  Company Number: 2011S1000061

PATIENT
  Age: 71 Year
  Sex: Male

DRUGS (13)
  1. AMLODIPINE [Concomitant]
  2. MUCOSTA [Concomitant]
  3. FRANDOL [Concomitant]
  4. WARFARIN SODIUM [Concomitant]
  5. METHYCOBAL /00324901/ [Concomitant]
  6. TAMBOCOR [Concomitant]
  7. TRYPTANOL /00002202/ [Concomitant]
  8. LOXONIN-60 [Concomitant]
  9. CODEINE SULFATE [Concomitant]
  10. TAKEPRON [Concomitant]
  11. MAGMITT [Concomitant]
  12. PRORENAL [Concomitant]
  13. LIVALO [Suspect]
     Indication: HYPERCHOLESTEROLAEMIA
     Dosage: 2 MG; 1X; PO
     Route: 048
     Dates: start: 20100801, end: 20101225

REACTIONS (2)
  - INTERSTITIAL LUNG DISEASE [None]
  - HAEMOPTYSIS [None]
